FAERS Safety Report 16949397 (Version 2)
Quarter: 2019Q4

REPORT INFORMATION
  Report Type: Report from Study
  Country: None (occurrence: FI)
  Receive Date: 20191023
  Receipt Date: 20191104
  Transmission Date: 20200122
  Serious: Yes (Death, Hospitalization)
  Sender: FDA-Public Use
  Company Number: FI-ABBVIE-19K-055-2972660-00

PATIENT
  Sex: Male

DRUGS (2)
  1. DUODOPA [Suspect]
     Active Substance: CARBIDOPA\LEVODOPA
     Dosage: DOSE DECREASED
     Route: 050
     Dates: start: 2019, end: 20191019
  2. DUODOPA [Suspect]
     Active Substance: CARBIDOPA\LEVODOPA
     Indication: PARKINSON^S DISEASE
     Dosage: STRENGTH: 20 MG/ML 5 MG/ML
     Route: 050
     Dates: start: 2012, end: 2019

REACTIONS (8)
  - Speech disorder [Unknown]
  - Dysphagia [Unknown]
  - Feeding disorder [Unknown]
  - Fluid intake reduced [Unknown]
  - Aspiration [Unknown]
  - Increased upper airway secretion [Unknown]
  - Pneumonia [Fatal]
  - Parkinson^s disease [Fatal]

NARRATIVE: CASE EVENT DATE: 2019
